FAERS Safety Report 11874262 (Version 1)
Quarter: 2015Q4

REPORT INFORMATION
  Report Type: Spontaneous
  Country: FR (occurrence: FR)
  Receive Date: 20151229
  Receipt Date: 20151229
  Transmission Date: 20160305
  Serious: Yes (Hospitalization)
  Sender: FDA-Public Use
  Company Number: FR-HOSPIRA-3118078

PATIENT
  Age: 67 Year
  Sex: Male

DRUGS (15)
  1. SUFENTANIL [Suspect]
     Active Substance: SUFENTANIL
     Indication: SURGERY
     Dates: start: 20151022, end: 20151022
  2. DROLEPTAN [Suspect]
     Active Substance: DROPERIDOL
     Indication: SURGERY
     Dates: start: 20151022, end: 20151022
  3. XYLOCAINE [Suspect]
     Active Substance: LIDOCAINE HYDROCHLORIDE
     Indication: SURGERY
     Dates: start: 20151022, end: 20151022
  4. ATRACURIUM BESILATE [Suspect]
     Active Substance: ATRACURIUM BESYLATE
     Indication: SURGERY
     Dates: start: 20151022, end: 20151022
  5. PROPOFOL. [Suspect]
     Active Substance: PROPOFOL
     Indication: SURGERY
     Dates: start: 20151022, end: 20151022
  6. NEOSTIGMINE METILSULFATE [Suspect]
     Active Substance: NEOSTIGMINE METHYLSULFATE
     Indication: SURGERY
     Dates: start: 20151022, end: 20151022
  7. AMOXICILLIN CLAVULANIC ACID [Suspect]
     Active Substance: AMOXICILLIN\CLAVULANIC ACID
     Indication: ANTIBIOTIC PROPHYLAXIS
     Route: 042
     Dates: start: 20151022, end: 20151022
  8. CONTRAMAL [Suspect]
     Active Substance: TRAMADOL HYDROCHLORIDE
     Indication: SURGERY
     Dates: start: 20151022, end: 20151023
  9. AMOXICILLIN SANDOZ [Suspect]
     Active Substance: AMOXICILLIN
     Indication: SURGERY
     Route: 042
     Dates: start: 20151022, end: 20151023
  10. ATROPINE SULFATE AGUETTANT [Suspect]
     Active Substance: ATROPINE SULFATE
     Indication: SURGERY
     Dates: start: 20151022, end: 20151022
  11. EPHEDRINE AGUETTANT [Suspect]
     Active Substance: EPHEDRINE
     Indication: SURGERY
     Dates: start: 20151022, end: 20151022
  12. ACUPAN [Suspect]
     Active Substance: NEFOPAM HYDROCHLORIDE
     Indication: SURGERY
     Dates: start: 20151022, end: 20151022
  13. SEVOFLURANE BAXTER [Suspect]
     Active Substance: SEVOFLURANE
     Indication: SURGERY
     Dates: start: 20151022, end: 20151022
  14. KETAMINE PANPHARMA [Suspect]
     Active Substance: KETAMINE
     Indication: SURGERY
     Dates: start: 20151022, end: 20151022
  15. DEXAMETHASONE MERCK                /00016002/ [Suspect]
     Active Substance: DEXAMETHASONE SODIUM PHOSPHATE
     Indication: SURGERY
     Dates: start: 20151022, end: 20151022

REACTIONS (1)
  - Renal failure [Recovered/Resolved]

NARRATIVE: CASE EVENT DATE: 20151023
